FAERS Safety Report 14055212 (Version 1)
Quarter: 2017Q4

REPORT INFORMATION
  Report Type: Spontaneous
  Country: US (occurrence: None)
  Receive Date: 20171006
  Receipt Date: 20171006
  Transmission Date: 20180321
  Serious: No
  Sender: FDA-Public Use
  Company Number: None

PATIENT

DRUGS (2)
  1. NIMBEX [Suspect]
     Active Substance: CISATRACURIUM BESYLATE
  2. SUCCINYLCHOLINE CHLORIDE. [Suspect]
     Active Substance: SUCCINYLCHOLINE CHLORIDE

REACTIONS (2)
  - Physical product label issue [None]
  - Circumstance or information capable of leading to medication error [None]
